FAERS Safety Report 18981168 (Version 1)
Quarter: 2021Q1

REPORT INFORMATION
  Report Type: Spontaneous
  Country: US (occurrence: US)
  Receive Date: 20210305
  Receipt Date: 20210305
  Transmission Date: 20210420
  Serious: Yes (Death)
  Sender: FDA-Public Use
  Company Number: None

PATIENT
  Age: 83 Year
  Sex: Male

DRUGS (1)
  1. DOXEPIN (DOXEPIN 6MG TAB) [Suspect]
     Active Substance: DOXEPIN
     Route: 048
     Dates: start: 20201127, end: 20201213

REACTIONS (8)
  - Abnormal behaviour [None]
  - Urinary retention [None]
  - Decreased appetite [None]
  - Coma [None]
  - Confusional state [None]
  - Aphasia [None]
  - Incontinence [None]
  - Asthenia [None]

NARRATIVE: CASE EVENT DATE: 20201215
